FAERS Safety Report 10186043 (Version 1)
Quarter: 2014Q2

REPORT INFORMATION
  Report Type: Spontaneous
  Country: US (occurrence: None)
  Receive Date: 20140520
  Receipt Date: 20140520
  Transmission Date: 20141212
  Serious: Yes (Other)
  Sender: FDA-Public Use
  Company Number: None

PATIENT
  Age: 51 Year
  Sex: Male

DRUGS (1)
  1. AFINITOR 10MG NOVARTIS [Suspect]
     Indication: RENAL CANCER
     Route: 048

REACTIONS (7)
  - Dry skin [None]
  - Headache [None]
  - Nausea [None]
  - Eye irritation [None]
  - Dyspnoea [None]
  - Cough [None]
  - Fatigue [None]
